FAERS Safety Report 11255643 (Version 1)
Quarter: 2015Q3

REPORT INFORMATION
  Report Type: Spontaneous
  Country: SE (occurrence: SE)
  Receive Date: 20150709
  Receipt Date: 20150709
  Transmission Date: 20151125
  Serious: Yes (Death, Other)
  Sender: FDA-Public Use
  Company Number: SE-PFIZER INC-2015224048

PATIENT
  Age: 5 Year
  Sex: Female

DRUGS (7)
  1. PHENYTOIN SODIUM. [Suspect]
     Active Substance: PHENYTOIN SODIUM
     Indication: GENERALISED TONIC-CLONIC SEIZURE
     Dosage: 6.6 MG/KG, UNK
  2. VALPROATE [Interacting]
     Active Substance: VALPROATE SODIUM
     Indication: GENERALISED TONIC-CLONIC SEIZURE
     Dosage: 60 MG/KG, UNK
  3. VALPROATE [Interacting]
     Active Substance: VALPROATE SODIUM
     Dosage: 75 MG/KG, DAILY
  4. NITRAZEPAM [Concomitant]
     Active Substance: NITRAZEPAM
     Indication: GENERALISED TONIC-CLONIC SEIZURE
     Dosage: UNK
  5. PHENYTOIN SODIUM. [Interacting]
     Active Substance: PHENYTOIN SODIUM
     Dosage: 7.1 MG/KG, UNK
  6. PHENYTOIN SODIUM. [Interacting]
     Active Substance: PHENYTOIN SODIUM
     Dosage: 8.3 MG/KG, UNK
  7. CARBAMAZEPINE. [Concomitant]
     Active Substance: CARBAMAZEPINE
     Indication: GENERALISED TONIC-CLONIC SEIZURE
     Dosage: UNK

REACTIONS (5)
  - Renal failure [Fatal]
  - Respiratory failure [Fatal]
  - Drug interaction [Fatal]
  - Acute hepatic failure [Fatal]
  - Toxicity to various agents [Unknown]
